FAERS Safety Report 5096150-X (Version None)
Quarter: 2006Q3

REPORT INFORMATION
  Report Type: 
  Country: None (occurrence: None)
  Receive Date: 20060905
  Receipt Date: 20060419
  Transmission Date: 20061208
  Serious: Yes (Hospitalization)
  Sender: FDA-Public Use
  Company Number: JP-ROCHE-445432

PATIENT
  Age: 58 Year
  Sex: Female
  Weight: 41 kg

DRUGS (1)
  1. PEGASYS [Suspect]
     Route: 058
     Dates: start: 20050517, end: 20050802

REACTIONS (10)
  - ADRENAL INSUFFICIENCY [None]
  - CHOLAEMIA [None]
  - DEPRESSED LEVEL OF CONSCIOUSNESS [None]
  - EMPTY SELLA SYNDROME [None]
  - EOSINOPHIL COUNT INCREASED [None]
  - HYPONATRAEMIA [None]
  - HYPOPITUITARISM [None]
  - INTERSTITIAL LUNG DISEASE [None]
  - MYOTONIA [None]
  - POSTPARTUM HYPOPITUITARISM [None]
